FAERS Safety Report 7213491-8 (Version None)
Quarter: 2011Q1

REPORT INFORMATION
  Report Type: 
  Country: None (occurrence: None)
  Receive Date: 20110106
  Receipt Date: 20101223
  Transmission Date: 20110831
  Serious: Yes (Hospitalization)
  Sender: FDA-Public Use
  Company Number: PHHY2010IT88332

PATIENT
  Sex: Female

DRUGS (6)
  1. METFORMIN HYDROCHLORIDE [Suspect]
     Indication: DIABETES MELLITUS
     Dosage: UNK
     Route: 048
     Dates: start: 20100101, end: 20101211
  2. IRBESARTAN [Concomitant]
  3. DOXAZOSIN [Concomitant]
  4. BETA BLOCKING AGENTS [Concomitant]
  5. CALCIUM CHANNEL BLOCKERS [Concomitant]
  6. HYDROCHLOROTHIAZIDE [Concomitant]

REACTIONS (5)
  - RENAL FAILURE ACUTE [None]
  - SHOCK [None]
  - DIARRHOEA [None]
  - VOMITING [None]
  - LACTIC ACIDOSIS [None]
